FAERS Safety Report 6343160-8 (Version None)
Quarter: 2009Q3

REPORT INFORMATION
  Report Type: 
  Country: None (occurrence: None)
  Receive Date: 20090908
  Receipt Date: 20090903
  Transmission Date: 20100115
  Serious: No
  Sender: FDA-Public Use
  Company Number: US-B.I. PHARMACEUTICALS,INC./RIDGEFIELD-2009-BP-09353BP

PATIENT
  Sex: Male

DRUGS (5)
  1. MICARDIS [Suspect]
     Indication: HYPERTENSION
     Dosage: 80 MG
     Route: 048
     Dates: start: 20090301, end: 20090806
  2. METOPROLOL [Concomitant]
     Indication: HYPERTENSION
     Dosage: 12.5 MG
  3. VYTORIN [Concomitant]
     Indication: BLOOD CHOLESTEROL INCREASED
  4. FOLTEX [Concomitant]
     Indication: SUPPLEMENTATION THERAPY
  5. FLOMAX [Concomitant]
     Indication: PROSTATE CANCER
     Dates: start: 20070101

REACTIONS (5)
  - ATRIAL FIBRILLATION [None]
  - HYPERTENSION [None]
  - MICTURITION URGENCY [None]
  - POLLAKIURIA [None]
  - TINNITUS [None]
